APPROVED DRUG PRODUCT: PRAMIPEXOLE DIHYDROCHLORIDE
Active Ingredient: PRAMIPEXOLE DIHYDROCHLORIDE
Strength: 1MG
Dosage Form/Route: TABLET;ORAL
Application: A090151 | Product #004 | TE Code: AB
Applicant: PHARMOBEDIENT CONSULTING LLC
Approved: Apr 30, 2012 | RLD: No | RS: No | Type: RX